FAERS Safety Report 18961872 (Version 1)
Quarter: 2021Q1

REPORT INFORMATION
  Report Type: Spontaneous
  Country: US (occurrence: US)
  Receive Date: 20210303
  Receipt Date: 20210303
  Transmission Date: 20210420
  Serious: No
  Sender: FDA-Public Use
  Company Number: US-JNJFOC-20210232533

PATIENT
  Sex: Female

DRUGS (2)
  1. TYLENOL 8 HR ARTHRITIS PAIN [Suspect]
     Active Substance: ACETAMINOPHEN
     Indication: TOOTHACHE
     Dosage: ONE 650MG TABLET ONCE
     Route: 048
     Dates: start: 20210212
  2. ADVIL [Concomitant]
     Active Substance: IBUPROFEN
     Indication: TOOTHACHE
     Route: 048
     Dates: start: 20210212

REACTIONS (4)
  - Feeling abnormal [Not Recovered/Not Resolved]
  - Inappropriate schedule of product administration [Unknown]
  - Asthenia [Not Recovered/Not Resolved]
  - Incorrect dose administered [Unknown]

NARRATIVE: CASE EVENT DATE: 20210212
